FAERS Safety Report 15407812 (Version 4)
Quarter: 2019Q1

REPORT INFORMATION
  Report Type: Spontaneous
  Country: US (occurrence: US)
  Receive Date: 20180920
  Receipt Date: 20190225
  Transmission Date: 20190417
  Serious: Yes (Death, Hospitalization, Other)
  Sender: FDA-Public Use
  Company Number: US-JUBILANT CADISTA PHARMACEUTICALS-2018JUB00377

PATIENT
  Age: 58 Year
  Sex: Female
  Weight: 84.2 kg

DRUGS (9)
  1. SIROLIMUS. [Concomitant]
     Active Substance: SIROLIMUS
  2. PREDNISONE. [Suspect]
     Active Substance: PREDNISONE
     Dosage: 5 MG, 1X/DAY
     Dates: start: 20180711
  3. PREDNISONE. [Suspect]
     Active Substance: PREDNISONE
     Dosage: 2.5 MG EVERY 8 HOURS
     Dates: start: 20180711
  4. IBRUTINIB [Suspect]
     Active Substance: IBRUTINIB
     Indication: CHRONIC GRAFT VERSUS HOST DISEASE
     Dosage: 280 MG, 1X/DAY
     Route: 048
     Dates: start: 20180315, end: 20180426
  5. ACYCLOVIR. [Concomitant]
     Active Substance: ACYCLOVIR
  6. PREDNISONE. [Suspect]
     Active Substance: PREDNISONE
     Dosage: 1 MG/KG/DAY
     Dates: start: 20180307, end: 20180410
  7. IBRUTINIB [Suspect]
     Active Substance: IBRUTINIB
     Indication: CHRONIC GRAFT VERSUS HOST DISEASE
     Dosage: 420 MG, 1X/DAY
     Route: 048
     Dates: start: 20180315, end: 20180724
  8. IBRUTINIB [Suspect]
     Active Substance: IBRUTINIB
     Dosage: 280 MG, 1X/DAY
     Route: 048
     Dates: start: 20180508
  9. PREDNISONE. [Suspect]
     Active Substance: PREDNISONE
     Dosage: 1 MG/KG/DAY
     Dates: start: 20180510

REACTIONS (10)
  - Skin infection [Not Recovered/Not Resolved]
  - Acute kidney injury [Not Recovered/Not Resolved]
  - Gastrointestinal haemorrhage [Recovered/Resolved]
  - Diarrhoea haemorrhagic [Recovered/Resolved]
  - Hypotension [Recovering/Resolving]
  - Septic shock [Fatal]
  - Asthenia [Unknown]
  - Platelet count decreased [Unknown]
  - Hypoglycaemia [Recovered/Resolved]
  - Prothrombin time ratio increased [Unknown]

NARRATIVE: CASE EVENT DATE: 201804
